FAERS Safety Report 4297021-9 (Version None)
Quarter: 2004Q1

REPORT INFORMATION
  Report Type: 
  Country: None (occurrence: None)
  Receive Date: 20040213
  Receipt Date: 20040130
  Transmission Date: 20041129
  Serious: Yes (Hospitalization)
  Sender: FDA-Public Use
  Company Number: RENA-10702

PATIENT
  Age: 67 Year
  Sex: Male
  Weight: 44 kg

DRUGS (7)
  1. RENAGEL [Suspect]
     Indication: HYPERPHOSPHATAEMIA
     Dosage: 2 G QD PO
     Route: 048
     Dates: start: 20030709, end: 20031015
  2. THYRADIN S [Concomitant]
  3. CALCIUM CARBONATE [Concomitant]
  4. DIGOXIN [Concomitant]
  5. AMEZINIUM METILSULFATE [Concomitant]
  6. NICORANDIL [Concomitant]
  7. RISUMIC [Concomitant]

REACTIONS (3)
  - CONSTIPATION [None]
  - FLATULENCE [None]
  - NAUSEA [None]
